FAERS Safety Report 4351223-1 (Version None)
Quarter: 2004Q2

REPORT INFORMATION
  Report Type: 
  Country: None (occurrence: None)
  Receive Date: 20040430
  Receipt Date: 20040430
  Transmission Date: 20050107
  Serious: No
  Sender: FDA-Public Use
  Company Number: None

PATIENT
  Age: 60 Year

DRUGS (9)
  1. METOPROLOL 25 MG BID [Suspect]
     Indication: CARDIAC FAILURE CONGESTIVE
  2. METOPROLOL 25 MG BID [Suspect]
     Indication: HYPERTENSION
  3. LISINOPRIL [Suspect]
     Indication: CARDIAC FAILURE CONGESTIVE
  4. LISINOPRIL [Suspect]
     Indication: HYPERTENSION
  5. ASPIRIN [Concomitant]
  6. ZOCOR [Concomitant]
  7. ZOLOFT [Concomitant]
  8. PROTONIX [Concomitant]
  9. ZESTRIL [Concomitant]

REACTIONS (2)
  - HYPOTENSION [None]
  - SINUS BRADYCARDIA [None]
